FAERS Safety Report 7271923-3 (Version None)
Quarter: 2011Q1

REPORT INFORMATION
  Report Type: 
  Country: None (occurrence: None)
  Receive Date: 20110203
  Receipt Date: 20110124
  Transmission Date: 20110831
  Serious: Yes (Hospitalization)
  Sender: FDA-Public Use
  Company Number: JP-SANOFI-AVENTIS-2011SA005824

PATIENT
  Age: 77 Year
  Sex: Male
  Weight: 45.7 kg

DRUGS (25)
  1. LENDORMIN [Suspect]
     Indication: MULTIPLE DRUG OVERDOSE INTENTIONAL
     Route: 048
     Dates: start: 20101221, end: 20101221
  2. LUVOX [Suspect]
     Route: 048
     Dates: start: 20101221, end: 20101221
  3. ACECOL [Concomitant]
     Indication: HYPERTENSION
     Route: 048
     Dates: end: 20101222
  4. LASIX [Concomitant]
     Indication: CARDIAC FAILURE CHRONIC
     Route: 048
  5. LENDORMIN [Suspect]
     Route: 048
     Dates: end: 20101222
  6. ISOSORBIDE DINITRATE [Concomitant]
     Indication: ANGINA PECTORIS
     Dosage: TAPE.
     Route: 065
  7. LOPEMIN [Concomitant]
     Indication: DIARRHOEA
     Route: 048
  8. MYSLEE [Suspect]
     Indication: INSOMNIA
     Route: 048
     Dates: end: 20101222
  9. ALDACTONE [Concomitant]
     Indication: CARDIAC FAILURE CHRONIC
     Route: 048
  10. BEZATOL - SLOW RELEASE [Concomitant]
     Indication: DYSLIPIDAEMIA
     Route: 048
  11. MYSLEE [Suspect]
     Route: 048
     Dates: start: 20101221, end: 20101221
  12. MYSLEE [Suspect]
     Route: 048
     Dates: start: 20101221, end: 20101221
  13. LENDORMIN [Suspect]
     Route: 048
     Dates: end: 20101222
  14. SINLESTAL [Concomitant]
     Indication: DYSLIPIDAEMIA
     Route: 048
  15. ARTIST [Concomitant]
     Indication: CARDIAC FAILURE CHRONIC
     Route: 048
  16. MYSLEE [Suspect]
     Indication: MULTIPLE DRUG OVERDOSE INTENTIONAL
     Route: 048
     Dates: end: 20101222
  17. LENDORMIN [Suspect]
     Indication: INSOMNIA
     Route: 048
     Dates: start: 20101221, end: 20101221
  18. LUVOX [Suspect]
     Route: 048
     Dates: start: 20101221, end: 20101221
  19. WARFARIN [Concomitant]
     Indication: ANGINA PECTORIS
     Route: 048
  20. DIGOXIN [Concomitant]
     Indication: CARDIAC FAILURE CHRONIC
     Route: 048
  21. ALLOPURINOL [Concomitant]
     Indication: HYPERURICAEMIA
     Route: 048
  22. PLETAL [Concomitant]
     Indication: ANGINA PECTORIS
     Route: 048
  23. PARIET [Concomitant]
     Indication: REFLUX OESOPHAGITIS
     Route: 048
  24. LUVOX [Suspect]
     Indication: DEPRESSION
     Route: 048
     Dates: end: 20101222
  25. LUVOX [Suspect]
     Indication: MULTIPLE DRUG OVERDOSE INTENTIONAL
     Route: 048
     Dates: end: 20101222

REACTIONS (5)
  - PNEUMONIA [None]
  - MULTIPLE DRUG OVERDOSE INTENTIONAL [None]
  - SUICIDE ATTEMPT [None]
  - ALTERED STATE OF CONSCIOUSNESS [None]
  - APNOEIC ATTACK [None]
